FAERS Safety Report 4823354-0 (Version None)
Quarter: 2005Q4

REPORT INFORMATION
  Report Type: 
  Country: None (occurrence: None)
  Receive Date: 20051107
  Receipt Date: 20051024
  Transmission Date: 20060501
  Serious: Yes (Other)
  Sender: FDA-Public Use
  Company Number: 2004057810

PATIENT
  Sex: Male

DRUGS (1)
  1. VIAGRA [Suspect]
     Indication: ERECTILE DYSFUNCTION
     Dosage: (25 MG, AS NECESSARY), ORAL
     Route: 048
     Dates: start: 20040101

REACTIONS (7)
  - DISCOMFORT [None]
  - HEADACHE [None]
  - PENIS DISORDER [None]
  - SPERM COUNT DECREASED [None]
  - TESTICULAR PAIN [None]
  - TESTIS DISCOMFORT [None]
  - VARICOCELE [None]
